FAERS Safety Report 25130057 (Version 5)
Quarter: 2025Q3

REPORT INFORMATION
  Report Type: Report from Study
  Country: BR (occurrence: BR)
  Receive Date: 20250327
  Receipt Date: 20250729
  Transmission Date: 20251021
  Serious: Yes (Hospitalization, Other)
  Sender: NOVARTIS
  Company Number: BR-002147023-NVSC2024BR216099

PATIENT
  Age: 80 Year
  Sex: Female
  Weight: 41.25 kg

DRUGS (4)
  1. KISQALI [Suspect]
     Active Substance: RIBOCICLIB SUCCINATE
     Indication: Breast cancer stage III
     Route: 065
     Dates: start: 202407, end: 20241028
  2. KISQALI [Suspect]
     Active Substance: RIBOCICLIB SUCCINATE
     Route: 065
  3. KISQALI [Suspect]
     Active Substance: RIBOCICLIB SUCCINATE
     Route: 065
  4. ANASTROZOLE [Suspect]
     Active Substance: ANASTROZOLE
     Indication: Breast cancer
     Dosage: 1 DOSAGE FORM, QD
     Route: 048
     Dates: start: 202407

REACTIONS (18)
  - Fall [Recovering/Resolving]
  - Femur fracture [Recovering/Resolving]
  - Erysipelas [Unknown]
  - Gait disturbance [Recovering/Resolving]
  - Hypersensitivity [Not Recovered/Not Resolved]
  - Skin exfoliation [Recovering/Resolving]
  - Dry skin [Unknown]
  - Erythema [Recovered/Resolved]
  - Joint swelling [Unknown]
  - Memory impairment [Unknown]
  - Fear [Recovering/Resolving]
  - Pruritus [Recovering/Resolving]
  - Peripheral swelling [Recovering/Resolving]
  - Sensitive skin [Recovering/Resolving]
  - Fear of falling [Unknown]
  - Skin discolouration [Recovering/Resolving]
  - Nausea [Recovered/Resolved]
  - Balance disorder [Unknown]

NARRATIVE: CASE EVENT DATE: 20241023
